FAERS Safety Report 8818719 (Version 2)
Quarter: 2012Q4

REPORT INFORMATION
  Report Type: 
  Country: US (occurrence: US)
  Receive Date: 20121001
  Receipt Date: 20121105
  Transmission Date: 20130627
  Serious: Yes (Hospitalization)
  Sender: FDA-Public Use
  Company Number: US-B.I. PHARMACEUTICALS,INC./RIDGEFIELD-2011-BP-26565BP

PATIENT
  Age: 86 Year
  Sex: Male

DRUGS (15)
  1. PRADAXA [Suspect]
     Indication: ATRIAL FIBRILLATION
     Dosage: 300 mg
     Route: 048
  2. PRADAXA [Suspect]
     Dosage: 150 mg
     Route: 048
     Dates: start: 2011, end: 20120924
  3. MULTIVITAMIN [Concomitant]
     Route: 048
  4. FISH OIL [Concomitant]
     Dosage: 1000 mg
     Route: 048
  5. ALBUTEROL SULFATE HFA [Concomitant]
     Route: 055
  6. FERROUS SULFATE [Concomitant]
     Dosage: 5 g
     Route: 048
  7. ISOSORBIDE MONONITRATE [Concomitant]
     Dosage: 30 mg
     Route: 048
  8. CHOLECALCIFEROL (VITAMIN D3) [Concomitant]
     Dosage: 1000 U
     Route: 048
  9. COREG [Concomitant]
     Dosage: 6.25 mg
     Route: 048
  10. FUROSEMIDE [Concomitant]
     Dosage: 80 mg
     Route: 048
  11. SYNTHROID [Concomitant]
     Dosage: 50 mcg
     Route: 048
  12. WARFARIN [Concomitant]
     Dosage: 1 mg
     Route: 048
     Dates: start: 20121019
  13. WARFARIN [Concomitant]
     Dosage: 2 mg
     Route: 048
     Dates: start: 20121026
  14. PLAVIX [Concomitant]
  15. BABY ASPIRIN [Concomitant]

REACTIONS (2)
  - Rectal haemorrhage [Not Recovered/Not Resolved]
  - Haemorrhage [Recovered/Resolved]
